FAERS Safety Report 18830768 (Version 2)
Quarter: 2021Q1

REPORT INFORMATION
  Report Type: Report from Study
  Country: None (occurrence: US)
  Receive Date: 20210203
  Receipt Date: 20210304
  Transmission Date: 20210419
  Serious: Yes (Hospitalization)
  Sender: FDA-Public Use
  Company Number: US-ABBVIE-21K-163-3756697-00

PATIENT
  Age: 60 Year
  Sex: Male
  Weight: 114.41 kg

DRUGS (4)
  1. HUMIRA [Suspect]
     Active Substance: ADALIMUMAB
     Indication: INFLAMMATION
  2. ATENOLOL. [Concomitant]
     Active Substance: ATENOLOL
     Indication: HYPERTENSION
  3. HUMIRA [Suspect]
     Active Substance: ADALIMUMAB
     Indication: PSORIASIS
     Dosage: LOADING DOSE
     Route: 058
     Dates: start: 20210118, end: 20210118
  4. AMLODIPINE [Concomitant]
     Active Substance: AMLODIPINE BESYLATE
     Indication: HYPERTENSION

REACTIONS (8)
  - Somnolence [Recovered/Resolved]
  - Pain of skin [Not Recovered/Not Resolved]
  - Blood potassium decreased [Recovering/Resolving]
  - Dermatitis [Not Recovered/Not Resolved]
  - Diabetes mellitus [Recovering/Resolving]
  - Feeding disorder [Recovered/Resolved]
  - Malaise [Recovered/Resolved]
  - Blood glucose increased [Recovering/Resolving]

NARRATIVE: CASE EVENT DATE: 202101
